FAERS Safety Report 11520872 (Version 3)
Quarter: 2017Q2

REPORT INFORMATION
  Report Type: Spontaneous
  Country: CN (occurrence: CN)
  Receive Date: 20150918
  Receipt Date: 20170505
  Transmission Date: 20170829
  Serious: Yes (Other)
  Sender: FDA-Public Use
  Company Number: CN-SUN PHARMACEUTICAL INDUSTRIES LTD-2015RR-103287

PATIENT
  Age: 50 Year
  Sex: Female
  Weight: 59.5 kg

DRUGS (1)
  1. ZOLEDRONIC ACID [Suspect]
     Active Substance: ZOLEDRONIC ACID
     Indication: OSTEOPOROSIS
     Dosage: 5 MG, UNK
     Route: 042
     Dates: start: 20120412

REACTIONS (2)
  - Infusion site reaction [Recovered/Resolved]
  - Drug-induced liver injury [Recovered/Resolved]
